FAERS Safety Report 13233009 (Version 2)
Quarter: 2017Q2

REPORT INFORMATION
  Report Type: Spontaneous
  Country: JP (occurrence: JP)
  Receive Date: 20170214
  Receipt Date: 20170607
  Transmission Date: 20170830
  Serious: Yes (Other)
  Sender: FDA-Public Use
  Company Number: JP-ROCHE-1893483

PATIENT
  Age: 8 Decade
  Sex: Female

DRUGS (1)
  1. BONVIVA [Suspect]
     Active Substance: IBANDRONATE SODIUM
     Indication: OSTEOPOROSIS
     Dosage: SINGLE DOSE ADMINISTRATION
     Route: 042
     Dates: start: 20170206, end: 20170206

REACTIONS (2)
  - Injection site reaction [Recovering/Resolving]
  - Acute phase reaction [Recovering/Resolving]

NARRATIVE: CASE EVENT DATE: 20170206
